FAERS Safety Report 4284834-2 (Version None)
Quarter: 2004Q1

REPORT INFORMATION
  Report Type: 
  Country: None (occurrence: None)
  Receive Date: 20040204
  Receipt Date: 20040123
  Transmission Date: 20041129
  Serious: Yes (Death, Hospitalization)
  Sender: FDA-Public Use
  Company Number: FR-BRISTOL-MYERS SQUIBB COMPANY-12485090

PATIENT
  Age: 64 Year
  Sex: Male
  Weight: 80 kg

DRUGS (7)
  1. AMIKACIN [Suspect]
     Indication: PNEUMONIA BACTERIAL
     Dates: start: 20031022, end: 20031107
  2. CYMEVAN [Suspect]
     Indication: PNEUMONIA VIRAL
     Route: 042
     Dates: start: 20031027, end: 20031027
  3. TRIFLUCAN [Suspect]
     Indication: PNEUMONIA BACTERIAL
     Route: 048
     Dates: start: 20031030, end: 20031111
  4. FORTUM [Suspect]
     Indication: PNEUMONIA BACTERIAL
     Route: 042
     Dates: start: 20031022, end: 20031109
  5. VANCOMYCIN HCL [Suspect]
     Indication: PNEUMONIA STAPHYLOCOCCAL
     Route: 042
     Dates: start: 20031022, end: 20031107
  6. VFEND [Suspect]
  7. CASPOFUNGIN ACETATE [Suspect]

REACTIONS (9)
  - APLASIA [None]
  - BLOOD BILIRUBIN INCREASED [None]
  - DEATH [None]
  - JAUNDICE [None]
  - JAUNDICE CHOLESTATIC [None]
  - LEUKOPENIA [None]
  - LUNG DISORDER [None]
  - PNEUMONIA VIRAL [None]
  - RESPIRATORY DISTRESS [None]
